FAERS Safety Report 15053261 (Version 2)
Quarter: 2018Q3

REPORT INFORMATION
  Report Type: Spontaneous
  Country: JP (occurrence: JP)
  Receive Date: 20180622
  Receipt Date: 20180802
  Transmission Date: 20181010
  Serious: Yes (Other)
  Sender: FDA-Public Use
  Company Number: JP-PFIZER INC-2018230349

PATIENT
  Age: 31 Year
  Sex: Male

DRUGS (5)
  1. CELECOX [Suspect]
     Active Substance: CELECOXIB
     Indication: LUMBAR HERNIA
     Dosage: 100 MG, TWICE A DAY
     Route: 048
     Dates: start: 201803, end: 201805
  2. EPERISONE HYDROCHLORIDE [Concomitant]
     Active Substance: EPERISONE HYDROCHLORIDE
     Indication: LUMBAR HERNIA
  3. EPERISONE HYDROCHLORIDE [Concomitant]
     Active Substance: EPERISONE HYDROCHLORIDE
     Indication: BACK PAIN
     Dosage: 50 MG, TWICE A DAY
     Route: 048
     Dates: start: 201803, end: 201805
  4. CELECOX [Suspect]
     Active Substance: CELECOXIB
     Indication: BACK PAIN
  5. TRAMAL [Concomitant]
     Active Substance: TRAMADOL
     Dosage: UNKNOWN DOSE, UNKNOWN FREQUENCY
     Route: 048
     Dates: end: 201803

REACTIONS (1)
  - Sleep apnoea syndrome [Recovered/Resolved]

NARRATIVE: CASE EVENT DATE: 201805
